FAERS Safety Report 19655576 (Version 4)
Quarter: 2021Q4

REPORT INFORMATION
  Report Type: Report from Study
  Country: SG (occurrence: SG)
  Receive Date: 20210804
  Receipt Date: 20211003
  Transmission Date: 20220303
  Serious: Yes (Other)
  Sender: FDA-Public Use
  Company Number: NVSC2021SG171651

PATIENT
  Age: 61 Year
  Sex: Male
  Weight: 64.1 kg

DRUGS (2)
  1. TRAMETINIB [Suspect]
     Active Substance: TRAMETINIB
     Indication: Colorectal cancer
     Dosage: 2 MG
     Route: 048
     Dates: start: 20210710, end: 20210721
  2. RUXOLITINIB [Suspect]
     Active Substance: RUXOLITINIB
     Indication: Colorectal cancer
     Dosage: 10 MG, BID
     Route: 048
     Dates: start: 20210710, end: 20210721

REACTIONS (1)
  - Retinopathy [Recovered/Resolved]

NARRATIVE: CASE EVENT DATE: 20210721
